FAERS Safety Report 19030829 (Version 1)
Quarter: 2021Q1

REPORT INFORMATION
  Report Type: Spontaneous
  Country: US (occurrence: US)
  Receive Date: 20210319
  Receipt Date: 20210319
  Transmission Date: 20210420
  Serious: Yes (Disabling)
  Sender: FDA-Public Use
  Company Number: None

PATIENT
  Age: 57 Year
  Sex: Female
  Weight: 78.75 kg

DRUGS (7)
  1. MULTIVITAMIN [Concomitant]
     Active Substance: VITAMINS
  2. VITAMIN D3 [Concomitant]
     Active Substance: CHOLECALCIFEROL
  3. PROLIA [Suspect]
     Active Substance: DENOSUMAB
     Indication: BONE DISORDER
     Dosage: ?          OTHER FREQUENCY:EVERY 6 MONTHS;OTHER ROUTE:INJECTION?
     Dates: start: 20180410, end: 20210110
  4. MELATONIN [Concomitant]
     Active Substance: MELATONIN
  5. EXEMESTANE. [Concomitant]
     Active Substance: EXEMESTANE
  6. K2 [Concomitant]
     Active Substance: JWH-018
  7. CALCIUM [Concomitant]
     Active Substance: CALCIUM

REACTIONS (6)
  - Ear infection [None]
  - Back pain [None]
  - Pain in extremity [None]
  - Neck pain [None]
  - Tinnitus [None]
  - Faecaloma [None]

NARRATIVE: CASE EVENT DATE: 20200601
